FAERS Safety Report 14269380 (Version 1)
Quarter: 2017Q4

REPORT INFORMATION
  Report Type: Spontaneous
  Country: FR (occurrence: FR)
  Receive Date: 20171211
  Receipt Date: 20171211
  Transmission Date: 20180321
  Serious: Yes (Hospitalization)
  Sender: FDA-Public Use
  Company Number: FR-PFIZER INC-2017519918

PATIENT
  Age: 51 Year
  Sex: Male
  Weight: 78 kg

DRUGS (16)
  1. METHYLPREDNISOLONE. [Suspect]
     Active Substance: METHYLPREDNISOLONE
     Indication: MULTIPLE SCLEROSIS
     Dosage: 1 G, CYCLIC/SEQUENTIAL EVERY 6 WEEKS
     Route: 042
     Dates: start: 2014
  2. LYRICA [Concomitant]
     Active Substance: PREGABALIN
     Dosage: UNK
  3. FOSAVANCE [Concomitant]
     Active Substance: ALENDRONATE SODIUM\CHOLECALCIFEROL
     Dosage: UNK
  4. DEBRIDAT /00465201/ [Concomitant]
     Active Substance: TRIMEBUTINE MALEATE
     Dosage: UNK
  5. BISOPROLOL [Concomitant]
     Active Substance: BISOPROLOL
     Dosage: UNK
  6. MECIR [Concomitant]
     Active Substance: TAMSULOSIN HYDROCHLORIDE
     Dosage: 0.4 MG, UNK
  7. QIZENDAY [Suspect]
     Active Substance: BIOTIN
     Indication: MULTIPLE SCLEROSIS
     Dosage: UNK
     Route: 048
     Dates: start: 20160920, end: 20170919
  8. FAMPYRA [Suspect]
     Active Substance: DALFAMPRIDINE
     Indication: MULTIPLE SCLEROSIS
     Dosage: 10 MG, DAILY
     Route: 048
     Dates: start: 2013
  9. EDUCTYL [Concomitant]
     Active Substance: POTASSIUM BITARTRATE\SODIUM BICARBONATE
     Dosage: UNK
  10. FORLAX [Concomitant]
     Active Substance: POLYETHYLENE GLYCOL 4000
     Dosage: UNK
  11. RIVOTRIL [Concomitant]
     Active Substance: CLONAZEPAM
     Dosage: UNK
  12. FENOFIBRATE. [Concomitant]
     Active Substance: FENOFIBRATE
     Dosage: UNK
  13. LIORESAL [Concomitant]
     Active Substance: BACLOFEN
     Dosage: UNK
     Dates: start: 2011
  14. METHYLPREDNISOLONE. [Concomitant]
     Active Substance: METHYLPREDNISOLONE
     Dosage: 1 G, MONTHLY
     Route: 040
     Dates: start: 2011
  15. SPAGULAX [Concomitant]
     Active Substance: PLANTAGO OVATA SEED
     Dosage: UNK
  16. ASPIRINE [Concomitant]
     Active Substance: ASPIRIN
     Dosage: UNK

REACTIONS (8)
  - Pulmonary infarction [Not Recovered/Not Resolved]
  - Phlebitis [Not Recovered/Not Resolved]
  - Abdominal pain [Unknown]
  - Dyspnoea [Unknown]
  - Pelvic venous thrombosis [Not Recovered/Not Resolved]
  - Biliary colic [Unknown]
  - Pulmonary embolism [Not Recovered/Not Resolved]
  - Inflammatory marker increased [Unknown]

NARRATIVE: CASE EVENT DATE: 201709
